FAERS Safety Report 7560905-X (Version None)
Quarter: 2011Q2

REPORT INFORMATION
  Report Type: 
  Country: None (occurrence: None)
  Receive Date: 20110621
  Receipt Date: 20110609
  Transmission Date: 20111010
  Serious: Yes (Hospitalization, Other)
  Sender: FDA-Public Use
  Company Number: US-ELI_LILLY_AND_COMPANY-US201106004677

PATIENT
  Sex: Male

DRUGS (21)
  1. CELEBREX [Concomitant]
  2. LOVAZA [Concomitant]
  3. SINEMET [Concomitant]
     Indication: PARKINSON'S DISEASE
  4. TOPROL-XL [Concomitant]
     Indication: CARDIAC DISORDER
  5. PRILOSEC [Concomitant]
  6. METFORMIN HCL [Concomitant]
  7. VITAMIN B COMPLEX CAP [Concomitant]
  8. FORTEO [Suspect]
     Indication: OSTEOPOROSIS
     Dosage: 20 UG, QD
     Dates: start: 20110201, end: 20110201
  9. ALDACTONE [Concomitant]
  10. ASPIRIN [Concomitant]
  11. FORTEO [Suspect]
     Dosage: 20 UG, QD
     Dates: start: 20110301, end: 20110501
  12. ROPINIROLE [Concomitant]
  13. ACIDOPHILUS [Concomitant]
  14. ASCORBIC ACID [Concomitant]
  15. VITAMIN D [Concomitant]
  16. CALCIUM CARBONATE [Concomitant]
  17. ENABLEX                            /01760402/ [Concomitant]
  18. PROSCAR [Concomitant]
  19. CARDURA [Concomitant]
     Indication: PROSTATIC DISORDER
  20. VITAMIN E [Concomitant]
  21. CENTRUM SILVER [Concomitant]

REACTIONS (8)
  - RIB FRACTURE [None]
  - ASTHENIA [None]
  - SLEEP DISORDER [None]
  - HALLUCINATION [None]
  - SPLENIC INJURY [None]
  - FEELING ABNORMAL [None]
  - FALL [None]
  - MEMORY IMPAIRMENT [None]
